FAERS Safety Report 10037851 (Version 1)
Quarter: 2014Q1

REPORT INFORMATION
  Report Type: Spontaneous
  Country: US (occurrence: US)
  Receive Date: 20140326
  Receipt Date: 20140326
  Transmission Date: 20141002
  Serious: No
  Sender: FDA-Public Use
  Company Number: US-009507513-1403USA008203

PATIENT
  Age: 16 Year
  Sex: Male

DRUGS (13)
  1. METHYLPREDNISOLONE SODIUM SUCCINATE [Suspect]
     Indication: LUNG INFILTRATION
     Dosage: UNK
  2. METHYLPREDNISOLONE SODIUM SUCCINATE [Suspect]
     Indication: ASPERGILLUS INFECTION
  3. METHYLPREDNISOLONE SODIUM SUCCINATE [Suspect]
     Indication: CHRONIC GRANULOMATOUS DISEASE
  4. METHYLPREDNISOLONE SODIUM SUCCINATE [Suspect]
     Indication: EVIDENCE BASED TREATMENT
  5. SULFAMETHOXAZOLE (+) TRIMETHOPRIM [Concomitant]
     Dosage: UNK
  6. INTERFERON GAMMA [Concomitant]
     Dosage: UNK
  7. VORICONAZOLE [Concomitant]
     Indication: LUNG INFILTRATION
  8. VORICONAZOLE [Concomitant]
     Indication: ASPERGILLUS INFECTION
  9. MEROPENEM [Concomitant]
     Indication: LUNG INFILTRATION
     Dosage: UNK
  10. MEROPENEM [Concomitant]
     Indication: ASPERGILLUS INFECTION
  11. MICAFUNGIN [Concomitant]
     Indication: ASPERGILLUS INFECTION
     Dosage: UNK
  12. MICAFUNGIN [Concomitant]
     Indication: LUNG INFILTRATION
  13. VANCOMYCIN [Concomitant]
     Indication: EVIDENCE BASED TREATMENT
     Dosage: UNK

REACTIONS (1)
  - Drug ineffective [Unknown]
